FAERS Safety Report 9641894 (Version 1)
Quarter: 2013Q4

REPORT INFORMATION
  Report Type: Spontaneous
  Country: CA (occurrence: CA)
  Receive Date: 20131023
  Receipt Date: 20131023
  Transmission Date: 20140711
  Serious: Yes (Hospitalization)
  Sender: FDA-Public Use
  Company Number: CA-VERTEX PHARMACEUTICALS INC-2013-010551

PATIENT
  Age: 56 Year
  Sex: Female

DRUGS (5)
  1. INCIVEK [Suspect]
     Indication: HEPATITIS C
     Dosage: UNK
     Route: 048
  2. PEGETRON [Suspect]
     Indication: HEPATITIS C
     Dosage: 120 ?G, QW
     Route: 058
  3. PEGETRON [Suspect]
     Dosage: 200 MG, BID
     Route: 048
  4. DIAMICRON [Concomitant]
     Route: 048
  5. EXEMESTANE [Concomitant]
     Route: 048

REACTIONS (1)
  - Cranial nerve paralysis [Unknown]
